FAERS Safety Report 8967774 (Version 1)
Quarter: 2012Q4

REPORT INFORMATION
  Report Type: Spontaneous
  Country: US (occurrence: None)
  Receive Date: 20121213
  Receipt Date: 20121213
  Transmission Date: 20130627
  Serious: Yes (Other)
  Sender: FDA-Public Use
  Company Number: None

PATIENT
  Age: 80 Year
  Sex: Male
  Weight: 91 kg

DRUGS (1)
  1. ABACAVIR / LAMIVUDINE - EPZICOM [Suspect]

REACTIONS (12)
  - Fatigue [None]
  - Dizziness postural [None]
  - Rash pruritic [None]
  - Rash macular [None]
  - Rash [None]
  - Gastric disorder [None]
  - Diarrhoea [None]
  - Tachycardia [None]
  - Dyspnoea [None]
  - Nausea [None]
  - Drug hypersensitivity [None]
  - Pyrexia [None]
